FAERS Safety Report 4319488-X (Version None)
Quarter: 2004Q1

REPORT INFORMATION
  Report Type: 
  Country: None (occurrence: None)
  Receive Date: 20040316
  Receipt Date: 20040227
  Transmission Date: 20041129
  Serious: Yes (Hospitalization, Other)
  Sender: FDA-Public Use
  Company Number: USA040360438

PATIENT
  Age: 75 Year
  Sex: Female
  Weight: 67 kg

DRUGS (5)
  1. ZYPREXA [Suspect]
     Indication: FIBROMYALGIA
     Dosage: 5 MG AT BEDTIME
  2. ASPIRIN [Concomitant]
  3. PAXIL [Concomitant]
  4. MIRAPEX (MIRAPEX) [Concomitant]
  5. PREDNISONE [Concomitant]

REACTIONS (6)
  - CEREBROVASCULAR ACCIDENT [None]
  - DIVERTICULITIS [None]
  - HEADACHE [None]
  - MONOPLEGIA [None]
  - PALPITATIONS [None]
  - POST PROCEDURAL COMPLICATION [None]
